FAERS Safety Report 14885912 (Version 1)
Quarter: 2018Q2

REPORT INFORMATION
  Report Type: Spontaneous
  Country: US (occurrence: US)
  Receive Date: 20180512
  Receipt Date: 20180512
  Transmission Date: 20180711
  Serious: No
  Sender: FDA-Public Use
  Company Number: US-ASTRAZENECA-2018SE63140

PATIENT
  Age: 59 Year
  Sex: Female

DRUGS (6)
  1. PREDNISONE. [Concomitant]
     Active Substance: PREDNISONE
     Route: 048
  2. BYDUREON BCISE [Suspect]
     Active Substance: EXENATIDE
     Indication: TYPE 2 DIABETES MELLITUS
     Route: 058
     Dates: start: 2018, end: 20180501
  3. METFORMIN [Concomitant]
     Active Substance: METFORMIN HYDROCHLORIDE
     Route: 048
  4. METHOTREXATE. [Concomitant]
     Active Substance: METHOTREXATE
     Route: 048
  5. TRICOR [Concomitant]
     Active Substance: FENOFIBRATE
     Route: 048
  6. LIPITOR [Concomitant]
     Active Substance: ATORVASTATIN CALCIUM
     Route: 048

REACTIONS (4)
  - Blood cholesterol increased [Unknown]
  - Chest pain [Recovered/Resolved]
  - Rheumatoid arthritis [Unknown]
  - Throat tightness [Recovered/Resolved]
